FAERS Safety Report 4283539-1 (Version None)
Quarter: 2004Q1

REPORT INFORMATION
  Report Type: 
  Country: None (occurrence: None)
  Receive Date: 20040121
  Receipt Date: 20030408
  Transmission Date: 20041129
  Serious: Yes (Other)
  Sender: FDA-Public Use
  Company Number: A03200300779

PATIENT
  Age: 73 Year
  Sex: Male
  Weight: 102.0593 kg

DRUGS (4)
  1. PLAVIX [Suspect]
     Indication: CEREBROVASCULAR ACCIDENT
     Dosage: 75 MG QD ORAL
     Route: 048
     Dates: start: 20020101, end: 20020601
  2. SINEMET [Suspect]
     Indication: PARKINSON'S DISEASE
     Dosage: 25MG/100MG QID AND 50MG/200MG BID
  3. POTASSIUM CHLORIDE [Concomitant]
  4. TORSEMIDE [Concomitant]

REACTIONS (2)
  - AGEUSIA [None]
  - CEREBROVASCULAR ACCIDENT [None]
